FAERS Safety Report 23940025 (Version 2)
Quarter: 2024Q2

REPORT INFORMATION
  Report Type: Other
  Country: US (occurrence: None)
  Receive Date: 20240605
  Receipt Date: 20240606
  Transmission Date: 20240717
  Serious: Yes (Other)
  Sender: FDA-Public Use
  Company Number: US-ROCHE-3576187

PATIENT
  Age: 64 Year
  Sex: Female

DRUGS (1)
  1. ESBRIET [Suspect]
     Active Substance: PIRFENIDONE
     Indication: Pulmonary fibrosis
     Dosage: TAKE 3 TABLET(S) BY MOUTH IN THE MORNING, IN THE AFTERNOON, AND AT BEDTIME
     Route: 048

REACTIONS (1)
  - Bladder cancer [Unknown]
